FAERS Safety Report 7419585-6 (Version None)
Quarter: 2011Q1

REPORT INFORMATION
  Report Type: 
  Country: None (occurrence: None)
  Receive Date: 20110302
  Receipt Date: 20101101
  Transmission Date: 20110831
  Serious: No
  Sender: FDA-Public Use
  Company Number: 021422

PATIENT
  Sex: Male
  Weight: 68 kg

DRUGS (4)
  1. MESALAMINE [Concomitant]
  2. CIMZIA [Suspect]
     Indication: CROHN'S DISEASE
     Dosage: (400 MG 1X/MONTH SUBCUTANEOUS)
     Route: 058
     Dates: start: 20100501
  3. VITAMINS NOS [Concomitant]
  4. IMURAN [Concomitant]

REACTIONS (1)
  - DIARRHOEA [None]
